FAERS Safety Report 26005726 (Version 1)
Quarter: 2025Q4

REPORT INFORMATION
  Report Type: Spontaneous
  Country: US (occurrence: None)
  Receive Date: 20251105
  Receipt Date: 20251105
  Transmission Date: 20260118
  Serious: Yes (Hospitalization)
  Sender: FDA-CTU
  Company Number: None

PATIENT
  Age: 18 Year
  Sex: Male
  Weight: 53.6 kg

DRUGS (1)
  1. HALOPERIDOL LACTATE [Suspect]
     Active Substance: HALOPERIDOL LACTATE
     Dosage: 5 MG/ML INTRAMUSCULAR
     Route: 030
     Dates: start: 20250902, end: 20250903

REACTIONS (4)
  - Dystonia [None]
  - Blood creatine phosphokinase increased [None]
  - Agitation [None]
  - Catatonia [None]

NARRATIVE: CASE EVENT DATE: 20250904
